FAERS Safety Report 8212952-2 (Version None)
Quarter: 2012Q1

REPORT INFORMATION
  Report Type: 
  Country: None (occurrence: None)
  Receive Date: 20120315
  Receipt Date: 20120312
  Transmission Date: 20120608
  Serious: Yes (Other)
  Sender: FDA-Public Use
  Company Number: US-PFIZER INC-2012065953

PATIENT
  Sex: Female

DRUGS (1)
  1. LYRICA [Suspect]
     Dosage: UNK

REACTIONS (10)
  - PATELLA FRACTURE [None]
  - HEADACHE [None]
  - ABDOMINAL PAIN UPPER [None]
  - INFLUENZA [None]
  - MALAISE [None]
  - MEMORY IMPAIRMENT [None]
  - OSTEOPOROSIS [None]
  - SOMNOLENCE [None]
  - BODY TEMPERATURE FLUCTUATION [None]
  - FIBROMYALGIA [None]
